FAERS Safety Report 11362465 (Version 1)
Quarter: 2015Q3

REPORT INFORMATION
  Report Type: Spontaneous
  Country: PH (occurrence: PH)
  Receive Date: 20150810
  Receipt Date: 20150810
  Transmission Date: 20151125
  Serious: Yes (Other)
  Sender: FDA-Public Use
  Company Number: PH-SA-2015SA118532

PATIENT
  Age: 63 Year
  Sex: Male

DRUGS (1)
  1. LASIX [Suspect]
     Active Substance: FUROSEMIDE
     Indication: POLYURIA
     Dosage: 40 MG = 2 AMPS 2X A DAY??ROUTE:IV PUSH
     Route: 040
     Dates: start: 20140723

REACTIONS (3)
  - Melaena [Unknown]
  - Faeces discoloured [Unknown]
  - Unevaluable event [Unknown]

NARRATIVE: CASE EVENT DATE: 20140725
